FAERS Safety Report 8488296-0 (Version None)
Quarter: 2012Q3

REPORT INFORMATION
  Report Type: 
  Country: None (occurrence: None)
  Receive Date: 20120705
  Receipt Date: 20120705
  Transmission Date: 20120928
  Serious: Yes (Hospitalization)
  Sender: FDA-Public Use
  Company Number: PHHO2011SE09708

PATIENT
  Sex: Male
  Weight: 61 kg

DRUGS (7)
  1. ZOFRAN [Concomitant]
     Indication: DIARRHOEA
     Dosage: 4 MG, QD
     Route: 048
     Dates: start: 20110418
  2. ALVEDON [Concomitant]
     Indication: BACK PAIN
     Dosage: 500 MG, QD
     Route: 048
     Dates: start: 20060523
  3. LESTID [Concomitant]
     Indication: DIARRHOEA
     Dosage: 2 G, ON DEMAND
     Route: 048
     Dates: start: 20100212
  4. CODEINE RESINATE [Concomitant]
     Indication: DIARRHOEA
     Dosage: 25 MG, QD
     Route: 048
     Dates: start: 20110517
  5. SANDOSTATIN LAR [Suspect]
     Indication: METASTATIC CARCINOID TUMOUR
     Dosage: 0.6 MG, UNK
     Route: 030
     Dates: start: 20101201, end: 20101228
  6. HYDROXOCOBALAMIN [Concomitant]
     Indication: VITAMIN B12 DEFICIENCY
     Dosage: 1 MG, QD
     Route: 048
     Dates: start: 20090909
  7. SANDOSTATIN LAR [Suspect]
     Dosage: UNK
     Route: 058
     Dates: start: 20110525, end: 20110530

REACTIONS (2)
  - SINUS BRADYCARDIA [None]
  - FATIGUE [None]
